FAERS Safety Report 9277019 (Version 2)
Quarter: 2013Q2

REPORT INFORMATION
  Report Type: Spontaneous
  Country: DE (occurrence: DE)
  Receive Date: 20130507
  Receipt Date: 20130515
  Transmission Date: 20140414
  Serious: Yes (Hospitalization)
  Sender: FDA-Public Use
  Company Number: DE-UCBSA-084906

PATIENT
  Age: 70 Year
  Sex: Female

DRUGS (4)
  1. VIMPAT [Suspect]
     Indication: TEMPORAL LOBE EPILEPSY
     Dosage: 100 (UNITS NOT PROVIDED)
  2. LEVETIRACETAM [Suspect]
     Dosage: 500 (UNITS NOT PROVIDED)
  3. PHENHYDAN [Suspect]
     Dosage: 1 (UNITS NOT PROVIDED)
  4. PRIMIDON [Concomitant]
     Dosage: UNKNOWN

REACTIONS (4)
  - Conduct disorder [Recovered/Resolved]
  - Therapy change [Unknown]
  - Aggression [Recovered/Resolved]
  - Constipation [Recovered/Resolved]
